FAERS Safety Report 8322025-6 (Version None)
Quarter: 2012Q2

REPORT INFORMATION
  Report Type: 
  Country: None (occurrence: None)
  Receive Date: 20120430
  Receipt Date: 20120418
  Transmission Date: 20120825
  Serious: Yes (Other)
  Sender: FDA-Public Use
  Company Number: US-JNJFOC-20120410241

PATIENT
  Age: 35 Year
  Sex: Female
  Weight: 72.58 kg

DRUGS (4)
  1. VITAMIN [Concomitant]
     Route: 065
  2. SEASONIQUE [Concomitant]
     Indication: CONTRACEPTION
     Route: 065
     Dates: start: 19950101
  3. BENGAY ZERO DEGREES MENTHOL PAIN RELIEVING GEL [Suspect]
     Indication: MUSCLE SPASMS
     Dosage: ROLLED ON NECK 3 TIMES
     Route: 061
     Dates: start: 20120412, end: 20120414
  4. BENGAY ZERO DEGREES MENTHOL PAIN RELIEVING GEL [Suspect]
     Indication: MUSCLE STRAIN
     Dosage: ROLLED ON NECK 3 TIMES
     Route: 061
     Dates: start: 20120412, end: 20120414

REACTIONS (3)
  - NAUSEA [None]
  - CHEMICAL INJURY [None]
  - CHILLS [None]
